FAERS Safety Report 13867614 (Version 2)
Quarter: 2017Q4

REPORT INFORMATION
  Report Type: Spontaneous
  Country: US (occurrence: US)
  Receive Date: 20170814
  Receipt Date: 20171114
  Transmission Date: 20180320
  Serious: No
  Sender: FDA-Public Use
  Company Number: US-AMGEN-USASP2017082137

PATIENT
  Age: 55 Year
  Sex: Male

DRUGS (1)
  1. PARSABIV [Suspect]
     Active Substance: ETELCALCETIDE HYDROCHLORIDE
     Indication: CHRONIC KIDNEY DISEASE
     Dosage: 5 MG, 3 TIMES/WK
     Route: 065

REACTIONS (1)
  - Weight increased [Unknown]
